FAERS Safety Report 7202816-5 (Version None)
Quarter: 2010Q4

REPORT INFORMATION
  Report Type: 
  Country: None (occurrence: None)
  Receive Date: 20101229
  Receipt Date: 20101210
  Transmission Date: 20110411
  Serious: No
  Sender: FDA-Public Use
  Company Number: US-B.I. PHARMACEUTICALS,INC./RIDGEFIELD-2010-BP-14531PF

PATIENT
  Sex: Female
  Weight: 58.96 kg

DRUGS (6)
  1. SPIRIVA [Suspect]
     Indication: CHRONIC OBSTRUCTIVE PULMONARY DISEASE
  2. CHANTIX [Suspect]
     Indication: SMOKING CESSATION THERAPY
  3. CHANTIX [Suspect]
     Dosage: 0.5 MG
     Dates: start: 20101210
  4. ADVAIR [Suspect]
     Indication: CHRONIC OBSTRUCTIVE PULMONARY DISEASE
     Dosage: 1100 MCG
  5. VYTORIN [Concomitant]
     Indication: BLOOD CHOLESTEROL ABNORMAL
     Route: 048
  6. LISINOPRIL [Concomitant]
     Indication: BLOOD PRESSURE ABNORMAL
     Dosage: 20 MG

REACTIONS (4)
  - INFECTION [None]
  - MOUTH ULCERATION [None]
  - NAIL DISORDER [None]
  - PRURITUS [None]
